FAERS Safety Report 16783464 (Version 1)
Quarter: 2019Q3

REPORT INFORMATION
  Report Type: Spontaneous
  Country: FR (occurrence: FR)
  Receive Date: 20190907
  Receipt Date: 20190907
  Transmission Date: 20191005
  Serious: Yes (Death, Congenital Anomaly)
  Sender: FDA-Public Use
  Company Number: FR-TEVA-2019-FR-1102492

PATIENT
  Age: 84 Year
  Sex: Male
  Weight: 66 kg

DRUGS (11)
  1. PEMETREXED. [Interacting]
     Active Substance: PEMETREXED
     Indication: MESOTHELIOMA
     Dosage: 720 MG
     Route: 042
     Dates: start: 20190719, end: 20190719
  2. CINACALCET. [Concomitant]
     Active Substance: CINACALCET
     Indication: HYPERPARATHYROIDISM SECONDARY
     Dosage: 60 MG
     Route: 048
  3. BISOPROLOL (FUMARATE ACIDE DE) [Concomitant]
     Active Substance: BISOPROLOL FUMARATE
     Indication: HYPERTENSION
     Dosage: 7.5MG
     Route: 048
  4. ESOMEPRAZOLE. [Concomitant]
     Active Substance: ESOMEPRAZOLE MAGNESIUM
     Indication: PROPHYLAXIS
     Dosage: 20MG
     Route: 048
     Dates: end: 20190726
  5. METHOTREXATE. [Suspect]
     Active Substance: METHOTREXATE
     Indication: RHEUMATIC DISORDER
     Dosage: 10MG
     Route: 058
     Dates: end: 20190726
  6. WARFARINE SODIQUE [Concomitant]
     Active Substance: WARFARIN SODIUM
     Indication: ATRIAL FIBRILLATION
     Dosage: 5 MG
     Route: 048
  7. ACIDE FOLIQUE [Concomitant]
     Active Substance: FOLIC ACID
     Indication: PROPHYLAXIS
     Dosage: 10MG
     Route: 048
  8. LEVOTHYROXINE SODIQUE [Concomitant]
     Active Substance: LEVOTHYROXINE SODIUM
     Indication: HYPOTHYROIDISM
     Dosage: 187.5MICROGRAM
     Route: 048
  9. TELMISARTAN. [Concomitant]
     Active Substance: TELMISARTAN
     Indication: HYPERTENSION
     Dosage: 80MG
     Route: 048
  10. CARBOPLATINE [Interacting]
     Active Substance: CARBOPLATIN
     Indication: MESOTHELIOMA
     Dosage: 279.5 MG
     Route: 042
     Dates: start: 20190719, end: 20190719
  11. FUROSEMIDE. [Concomitant]
     Active Substance: FUROSEMIDE
     Indication: HYPERTENSION
     Dosage: 60MG
     Route: 048

REACTIONS (3)
  - Aplasia [Fatal]
  - Drug interaction [Fatal]
  - Infection [Fatal]

NARRATIVE: CASE EVENT DATE: 201907
